FAERS Safety Report 4654204-3 (Version None)
Quarter: 2005Q2

REPORT INFORMATION
  Report Type: 
  Country: None (occurrence: None)
  Receive Date: 20050504
  Receipt Date: 20050421
  Transmission Date: 20051028
  Serious: Yes (Hospitalization, Other)
  Sender: FDA-Public Use
  Company Number: 2005059009

PATIENT
  Age: 71 Year
  Sex: Male
  Weight: 79.3795 kg

DRUGS (3)
  1. CELEBREX [Suspect]
     Indication: ARTHRALGIA
     Dosage: 200 MG (200 MG, 1 IN 1 D) ORAL
     Route: 048
     Dates: start: 20030101, end: 20040101
  2. FINASTERIDE [Concomitant]
  3. DOXAZOSIN MESYLATE [Concomitant]

REACTIONS (3)
  - CONDITION AGGRAVATED [None]
  - DIFFICULTY IN WALKING [None]
  - OSTEOARTHRITIS [None]
